FAERS Safety Report 16671451 (Version 2)
Quarter: 2019Q3

REPORT INFORMATION
  Report Type: Report from Study
  Country: US (occurrence: US)
  Receive Date: 20190806
  Receipt Date: 20190814
  Transmission Date: 20191004
  Serious: Yes (Other)
  Sender: FDA-Public Use
  Company Number: US-ROCHE-2337945

PATIENT
  Age: 49 Year
  Sex: Male
  Weight: 85.3 kg

DRUGS (4)
  1. OXYCODONE [Concomitant]
     Active Substance: OXYCODONE
  2. ATEZOLIZUMAB. [Suspect]
     Active Substance: ATEZOLIZUMAB
     Indication: GASTRIC CANCER
     Dosage: DATE OF MOST RECENT DOSE PRIOR TO SAE ONSET: 06/JUN/2019.
     Route: 042
     Dates: start: 20190516
  3. ZYRTEC [Concomitant]
     Active Substance: CETIRIZINE HYDROCHLORIDE
  4. CABOZANTINIB [Suspect]
     Active Substance: CABOZANTINIB
     Indication: GASTRIC CANCER
     Dosage: DATE OF MOST RECENT DOSE PRIOR TO SAE ONSET: 06/JUN/2019.
     Route: 048
     Dates: start: 20190516

REACTIONS (1)
  - Infusion related reaction [Recovered/Resolved]
